FAERS Safety Report 4269428-7 (Version None)
Quarter: 2004Q1

REPORT INFORMATION
  Report Type: 
  Country: None (occurrence: None)
  Receive Date: 20040108
  Receipt Date: 20031229
  Transmission Date: 20041129
  Serious: Yes (Hospitalization)
  Sender: FDA-Public Use
  Company Number: DE-JNJFOC-20031205200

PATIENT
  Age: 52 Year
  Sex: Male

DRUGS (4)
  1. RISPERDAL CONSTA [Suspect]
     Dosage: SEE IMAGE, INTRAMUSCULAR
     Route: 030
     Dates: start: 20031024, end: 20031219
  2. RISPERDAL CONSTA [Suspect]
     Dosage: SEE IMAGE, INTRAMUSCULAR
     Route: 030
     Dates: start: 20031219
  3. ALPRAZOLAM [Concomitant]
  4. LORAZEPAM [Concomitant]

REACTIONS (4)
  - AKATHISIA [None]
  - DIPLEGIA [None]
  - FEAR [None]
  - NERVOUSNESS [None]
